FAERS Safety Report 23988526 (Version 1)
Quarter: 2024Q2

REPORT INFORMATION
  Report Type: Report from Study
  Country: US (occurrence: US)
  Receive Date: 20240619
  Receipt Date: 20240619
  Transmission Date: 20240716
  Serious: Yes (Other)
  Sender: FDA-Public Use
  Company Number: US-AMNEAL PHARMACEUTICALS-2024-AMRX-00817

PATIENT
  Age: 57 Year
  Sex: Female

DRUGS (3)
  1. ONGENTYS [Suspect]
     Active Substance: OPICAPONE
     Indication: Parkinson^s disease
     Dosage: 1 CAPSULES, QD
     Route: 048
     Dates: start: 202310, end: 20240212
  2. ONGENTYS [Suspect]
     Active Substance: OPICAPONE
     Dosage: 1 CAPSULES, QD
     Route: 048
     Dates: start: 20240313, end: 20240425
  3. ROPINIROLE [Concomitant]
     Active Substance: ROPINIROLE
     Indication: Product used for unknown indication
     Dosage: UNK
     Route: 065

REACTIONS (6)
  - Mental impairment [Recovered/Resolved]
  - Brief resolved unexplained event [Recovered/Resolved]
  - Decreased appetite [Recovered/Resolved]
  - Nausea [Recovered/Resolved]
  - Weight decreased [Recovered/Resolved]
  - Product use issue [Unknown]

NARRATIVE: CASE EVENT DATE: 20240212
